FAERS Safety Report 6541013-3 (Version None)
Quarter: 2010Q1

REPORT INFORMATION
  Report Type: 
  Country: None (occurrence: None)
  Receive Date: 20100118
  Receipt Date: 20100108
  Transmission Date: 20100710
  Serious: Yes (Death)
  Sender: FDA-Public Use
  Company Number: CHPA2009JP23741

PATIENT
  Age: 65 Year
  Sex: Male

DRUGS (4)
  1. NICOTINELL TTS (NCH) [Suspect]
     Indication: SMOKING CESSATION THERAPY
     Dosage: 52.5 MG, QD
     Route: 062
     Dates: start: 20091216, end: 20091217
  2. RHEUMATREX [Concomitant]
  3. FOLIAMIN [Concomitant]
  4. BENET [Concomitant]

REACTIONS (7)
  - ARRHYTHMIA [None]
  - BOWEL MOVEMENT IRREGULARITY [None]
  - CARDIAC DISORDER [None]
  - HYPERGLYCAEMIA [None]
  - NAUSEA [None]
  - PULSE ABSENT [None]
  - UNRESPONSIVE TO STIMULI [None]
